FAERS Safety Report 18461852 (Version 6)
Quarter: 2021Q1

REPORT INFORMATION
  Report Type: Report from Study
  Country: CA (occurrence: CA)
  Receive Date: 20201104
  Receipt Date: 20210115
  Transmission Date: 20210419
  Serious: Yes (Other)
  Sender: FDA-Public Use
  Company Number: CA-GLAXOSMITHKLINE-CA2020AMR011174

PATIENT
  Sex: Female

DRUGS (14)
  1. MEPOLIZUMAB [Suspect]
     Active Substance: MEPOLIZUMAB
     Indication: ASTHMA
     Dosage: 100 MG, Z (MONTHLY)
     Route: 042
     Dates: start: 20191030
  2. MEPOLIZUMAB [Suspect]
     Active Substance: MEPOLIZUMAB
     Dosage: 100 MG, Z (MONTHLY)
     Route: 042
     Dates: start: 20201015
  3. METHOTREXATE. [Suspect]
     Active Substance: METHOTREXATE
     Indication: ARTHRITIS
     Dosage: 25 MG
     Route: 058
  4. PULMICORT TURBUHALER [Suspect]
     Active Substance: BUDESONIDE
     Dosage: 2 PUFF(S), BID, 400
     Route: 055
  5. PREDNISONE. [Suspect]
     Active Substance: PREDNISONE
     Indication: ARTHRITIS
  6. ADVIL [Suspect]
     Active Substance: IBUPROFEN
     Indication: PRODUCT USED FOR UNKNOWN INDICATION
     Dosage: UNK
  7. RIFAMPIN. [Suspect]
     Active Substance: RIFAMPIN
     Indication: LATENT TUBERCULOSIS
     Dosage: 600 MG, QD
     Dates: start: 20201108
  8. PLAQUENIL [Suspect]
     Active Substance: HYDROXYCHLOROQUINE SULFATE
     Indication: ARTHRITIS
     Dosage: 200 MG, QD
  9. REACTINE (CETIRIZINE HYDROCHLORIDE) [Suspect]
     Active Substance: CETIRIZINE HYDROCHLORIDE
     Indication: PRODUCT USED FOR UNKNOWN INDICATION
     Dosage: 20 MG, QD
  10. PULMICORT TURBUHALER [Suspect]
     Active Substance: BUDESONIDE
     Indication: PRODUCT USED FOR UNKNOWN INDICATION
     Dosage: 2 PUFF(S), BID
     Route: 055
  11. PREDNISONE. [Suspect]
     Active Substance: PREDNISONE
     Indication: ARTHRALGIA
     Dosage: 15 MG, QD
     Dates: start: 20201231
  12. THEOPHYLLINE [Suspect]
     Active Substance: THEOPHYLLINE ANHYDROUS
     Indication: PRODUCT USED FOR UNKNOWN INDICATION
     Dosage: UNK
  13. FOLIC ACID. [Suspect]
     Active Substance: FOLIC ACID
     Indication: PRODUCT USED FOR UNKNOWN INDICATION
     Dosage: 5 MG, (6/7 DAYS)
  14. PREDNISONE. [Suspect]
     Active Substance: PREDNISONE
     Indication: COUGH
     Dosage: 20 MG, QD
     Dates: start: 20201221

REACTIONS (22)
  - Colitis ulcerative [Unknown]
  - Synovial cyst [Unknown]
  - Rhinorrhoea [Unknown]
  - Productive cough [Unknown]
  - Latent tuberculosis [Unknown]
  - Gait inability [Recovering/Resolving]
  - Cough [Recovered/Resolved]
  - Joint swelling [Unknown]
  - Synovitis [Unknown]
  - Drug-induced liver injury [Unknown]
  - Hypoaesthesia [Unknown]
  - Gait disturbance [Unknown]
  - Eosinophil count increased [Unknown]
  - Drug ineffective [Unknown]
  - Autoimmune disorder [Unknown]
  - Respiratory symptom [Unknown]
  - Pancreatitis [Unknown]
  - Arthritis [Not Recovered/Not Resolved]
  - Oligoarthritis [Not Recovered/Not Resolved]
  - Arthralgia [Recovering/Resolving]
  - C-reactive protein increased [Unknown]
  - Musculoskeletal stiffness [Unknown]
